FAERS Safety Report 10674966 (Version 1)
Quarter: 2014Q4

REPORT INFORMATION
  Report Type: Spontaneous
  Country: US (occurrence: US)
  Receive Date: 20141224
  Receipt Date: 20141224
  Transmission Date: 20150529
  Serious: No
  Sender: FDA-Public Use
  Company Number: US-GLAXOSMITHKLINE-A1059440A

PATIENT

DRUGS (7)
  1. PROZAC [Concomitant]
     Active Substance: FLUOXETINE HYDROCHLORIDE
  2. FLONASE [Suspect]
     Active Substance: FLUTICASONE PROPIONATE
     Indication: NOCTURNAL DYSPNOEA
     Route: 045
  3. ESTRADIOL. [Concomitant]
     Active Substance: ESTRADIOL
  4. SIMVASTATIN. [Concomitant]
     Active Substance: SIMVASTATIN
  5. DOXEPIN [Concomitant]
     Active Substance: DOXEPIN
  6. XANAX [Concomitant]
     Active Substance: ALPRAZOLAM
  7. HCTZ [Concomitant]
     Active Substance: HYDROCHLOROTHIAZIDE

REACTIONS (2)
  - Nasal congestion [Not Recovered/Not Resolved]
  - Drug ineffective [Not Recovered/Not Resolved]
